FAERS Safety Report 24163737 (Version 1)
Quarter: 2024Q3

REPORT INFORMATION
  Report Type: Spontaneous
  Country: US (occurrence: None)
  Receive Date: 20240801
  Receipt Date: 20240801
  Transmission Date: 20241017
  Serious: Yes (Disabling, Other)
  Sender: Public
  Company Number: None

PATIENT
  Age: 52 Year
  Sex: Male
  Weight: 72 kg

DRUGS (10)
  1. MONTELUKAST SODIUM [Suspect]
     Active Substance: MONTELUKAST SODIUM
     Indication: Multiple allergies
     Dosage: OTHER QUANTITY : 1 TABLET(S);?FREQUENCY : DAILY;?
     Route: 048
     Dates: start: 20221004, end: 20240708
  2. ALBUTEROL [Concomitant]
     Active Substance: ALBUTEROL
  3. ROSUVASTATIN [Concomitant]
     Active Substance: ROSUVASTATIN\ROSUVASTATIN CALCIUM
  4. JARDIANCE [Concomitant]
     Active Substance: EMPAGLIFLOZIN
  5. LOSARTAN [Concomitant]
     Active Substance: LOSARTAN\LOSARTAN POTASSIUM
  6. SYMBICORT [Concomitant]
     Active Substance: BUDESONIDE\FORMOTEROL FUMARATE DIHYDRATE
  7. montelukast/singular [Concomitant]
  8. DEVICE [Concomitant]
     Active Substance: DEVICE
  9. DIGESTIVE ADVANTAGE PROBIOTIC [Concomitant]
  10. ZYRTEC [Concomitant]
     Active Substance: CETIRIZINE HYDROCHLORIDE

REACTIONS (11)
  - Drug ineffective [None]
  - Depression [None]
  - Anxiety [None]
  - Emotional distress [None]
  - Condition aggravated [None]
  - Alopecia [None]
  - Diarrhoea [None]
  - Muscle atrophy [None]
  - Fatigue [None]
  - Skin atrophy [None]
  - Menstruation irregular [None]

NARRATIVE: CASE EVENT DATE: 20231201
